FAERS Safety Report 24713017 (Version 1)
Quarter: 2024Q4

REPORT INFORMATION
  Report Type: Spontaneous
  Country: US (occurrence: None)
  Receive Date: 20241209
  Receipt Date: 20241209
  Transmission Date: 20250114
  Serious: Yes (Other)
  Sender: Public
  Company Number: None

PATIENT
  Sex: Female

DRUGS (6)
  1. AVONEX [Suspect]
     Active Substance: INTERFERON BETA-1A
     Indication: Multiple sclerosis
     Dosage: FREQ: INJECT 1 PEN (30 MCG) IN THE MUSCLE WEEKLY?
     Route: 030
     Dates: start: 20220111
  2. AVONEX PREFIL KIT [Concomitant]
  3. BACLOFEN [Concomitant]
     Active Substance: BACLOFEN
  4. CLONAZEP ODT [Concomitant]
  5. FENTANYL [Concomitant]
     Active Substance: FENTANYL
  6. PERCOCET [Concomitant]
     Active Substance: ACETAMINOPHEN\OXYCODONE HYDROCHLORIDE

REACTIONS (3)
  - Muscle spasms [None]
  - Fatigue [None]
  - Spinal operation [None]
